FAERS Safety Report 6537543-0 (Version None)
Quarter: 2010Q1

REPORT INFORMATION
  Report Type: 
  Country: None (occurrence: None)
  Receive Date: 20100114
  Receipt Date: 20100104
  Transmission Date: 20100710
  Serious: Yes (Hospitalization)
  Sender: FDA-Public Use
  Company Number: FR-ELI_LILLY_AND_COMPANY-FR201001000126

PATIENT
  Sex: Male

DRUGS (10)
  1. ZYPREXA [Suspect]
     Indication: BIPOLAR DISORDER
     Dosage: 1 D/F, UNK
     Route: 048
     Dates: start: 20090815
  2. SINEMET [Concomitant]
     Dosage: 200 MG, 3/D
     Route: 048
  3. SINEMET [Concomitant]
     Dosage: 50 MG, UNK
  4. TERALITHE [Concomitant]
     Indication: BIPOLAR DISORDER
     Dosage: 250 MG, 3/D
     Route: 048
  5. LANTUS [Concomitant]
  6. NOVORAPID [Concomitant]
  7. GLUCOPHAGE [Concomitant]
     Dosage: 850 MG, 3/D
  8. TRIATEC [Concomitant]
     Dosage: 10 MG, UNK
  9. KARDEGIC /00002703/ [Concomitant]
     Dosage: 75 MG, DAILY (1/D)
  10. PERMIXON /00833501/ [Concomitant]
     Dosage: 2 D/F, DAILY (1/D)

REACTIONS (11)
  - ANTIPSYCHOTIC DRUG LEVEL INCREASED [None]
  - ASTHENIA [None]
  - COGNITIVE DISORDER [None]
  - DECREASED APPETITE [None]
  - DEMENTIA [None]
  - EXTRAPYRAMIDAL DISORDER [None]
  - FATIGUE [None]
  - HYPERTONIA [None]
  - QUALITY OF LIFE DECREASED [None]
  - TREMOR [None]
  - WEIGHT DECREASED [None]
